FAERS Safety Report 8087056-2 (Version None)
Quarter: 2012Q1

REPORT INFORMATION
  Report Type: 
  Country: None (occurrence: None)
  Receive Date: 20120128
  Receipt Date: 20110615
  Transmission Date: 20120608
  Serious: No
  Sender: FDA-Public Use
  Company Number: US-ABBOTT-11P-163-0733477-00

PATIENT
  Sex: Female

DRUGS (8)
  1. PENTASA [Concomitant]
     Indication: CROHN'S DISEASE
  2. SODIUM CHLORIDE [Concomitant]
     Indication: ELECTROLYTE SUBSTITUTION THERAPY
  3. ALENDRONATE SODIUM [Concomitant]
     Indication: PRODUCT USED FOR UNKNOWN INDICATION
  4. CLINDEX [Concomitant]
     Indication: CROHN'S DISEASE
  5. LORATADINE [Concomitant]
     Indication: SEASONAL ALLERGY
  6. VITAMIN D [Concomitant]
     Indication: MINERAL SUPPLEMENTATION
  7. CALCIUM [Concomitant]
     Indication: MINERAL SUPPLEMENTATION
  8. HUMIRA [Suspect]
     Indication: CROHN'S DISEASE
     Dates: start: 20110601, end: 20110601

REACTIONS (3)
  - INJECTION SITE HAEMATOMA [None]
  - SPIDER VEIN [None]
  - INJECTION SITE PAIN [None]
